FAERS Safety Report 9993914 (Version 2)
Quarter: 2014Q1

REPORT INFORMATION
  Report Type: Report from Study
  Country: CA (occurrence: US)
  Receive Date: 20140310
  Receipt Date: 20140325
  Transmission Date: 20141002
  Serious: Yes (Other)
  Sender: FDA-Public Use
  Company Number: CA-ABBVIE-14P-028-1209257-00

PATIENT
  Sex: Male
  Weight: 93 kg

DRUGS (8)
  1. LUPRON DEPOT [Suspect]
     Indication: PROSTATE CANCER
     Dosage: LATEST INJECTION: 19-DEC-2013
     Route: 050
     Dates: start: 2010
  2. LUPRON DEPOT [Suspect]
     Indication: METASTATIC NEOPLASM
     Dosage: 4/12
     Route: 030
     Dates: start: 201205
  3. LUPRON DEPOT [Suspect]
     Indication: PROSTATIC SPECIFIC ANTIGEN INCREASED
  4. LUPRON DEPOT [Suspect]
     Indication: PROSTATE CANCER
     Dosage: 4/12
     Route: 030
     Dates: start: 20091016
  5. LUPRON DEPOT [Suspect]
     Indication: METASTATIC NEOPLASM
     Route: 030
     Dates: start: 20131009
  6. LUPRON DEPOT [Suspect]
     Indication: PROSTATIC SPECIFIC ANTIGEN INCREASED
  7. METFORMIN [Concomitant]
     Indication: DIABETES MELLITUS
  8. LIPITOR [Concomitant]
     Indication: BLOOD CHOLESTEROL INCREASED

REACTIONS (1)
  - Metastases to spine [Not Recovered/Not Resolved]
